FAERS Safety Report 8502267-7 (Version None)
Quarter: 2012Q3

REPORT INFORMATION
  Report Type: 
  Country: None (occurrence: None)
  Receive Date: 20120711
  Receipt Date: 20120629
  Transmission Date: 20120928
  Serious: Yes (Death)
  Sender: FDA-Public Use
  Company Number: US-MYLANLABS-2012S1013296

PATIENT
  Sex: Male

DRUGS (1)
  1. FENTANYL-100 [Suspect]
     Route: 048

REACTIONS (2)
  - DRUG ABUSE [None]
  - INTENTIONAL DRUG MISUSE [None]
